FAERS Safety Report 18292529 (Version 2)
Quarter: 2021Q2

REPORT INFORMATION
  Report Type: Spontaneous
  Country: US (occurrence: US)
  Receive Date: 20200922
  Receipt Date: 20210401
  Transmission Date: 20210717
  Serious: Yes (Other)
  Sender: FDA-Public Use
  Company Number: US-SA-2020SA256744

PATIENT
  Age: 56 Year
  Sex: Male

DRUGS (3)
  1. CAPRELSA [Suspect]
     Active Substance: VANDETANIB
     Indication: THYROID CANCER
     Dosage: UNK
     Route: 048
     Dates: start: 20200520
  2. CAPRELSA [Suspect]
     Active Substance: VANDETANIB
     Dosage: 100 MG, QD
     Route: 065
     Dates: start: 20200520, end: 20210322
  3. CAPRELSA [Suspect]
     Active Substance: VANDETANIB
     Dosage: 100 MG, QD, DOSE REDUCED
     Route: 048

REACTIONS (3)
  - Condition aggravated [Unknown]
  - Rash [Recovered/Resolved]
  - Thyroid cancer [Unknown]

NARRATIVE: CASE EVENT DATE: 202008
